FAERS Safety Report 7027081-3 (Version None)
Quarter: 2010Q4

REPORT INFORMATION
  Report Type: 
  Country: None (occurrence: None)
  Receive Date: 20101004
  Receipt Date: 20100929
  Transmission Date: 20110411
  Serious: Yes (Hospitalization, Other)
  Sender: FDA-Public Use
  Company Number: IT-BAYER-201031449GPV

PATIENT
  Age: 57 Year
  Sex: Male
  Weight: 85 kg

DRUGS (12)
  1. SORAFENIB [Suspect]
     Indication: HEPATIC NEOPLASM MALIGNANT
     Dosage: TOTAL DAILY DOSE: 800 MG  UNIT DOSE: 200 MG
     Dates: start: 20100218, end: 20100311
  2. SORAFENIB [Suspect]
     Dosage: TOTAL DAILY DOSE: 800 MG  UNIT DOSE: 200 MG
     Dates: start: 20100312, end: 20100408
  3. SORAFENIB [Suspect]
     Dosage: TOTAL DAILY DOSE: 800 MG  UNIT DOSE: 200 MG
     Dates: start: 20100409, end: 20100503
  4. SORAFENIB [Suspect]
     Dosage: TOTAL DAILY DOSE: 800 MG  UNIT DOSE: 200 MG
     Dates: start: 20100528, end: 20100621
  5. SORAFENIB [Suspect]
     Dosage: TOTAL DAILY DOSE: 800 MG  UNIT DOSE: 200 MG
     Dates: start: 20100504, end: 20100527
  6. PLACEBO TO ERLOTINIB [Suspect]
     Indication: HEPATIC NEOPLASM MALIGNANT
     Dosage: CYCLE 3 DAY 1
     Dates: start: 20100528, end: 20100621
  7. PLACEBO TO ERLOTINIB [Suspect]
     Dosage: CYCLE 2 DAY 22
     Dates: start: 20100504, end: 20100527
  8. PLACEBO TO ERLOTINIB [Suspect]
     Dosage: CYCLE 2 DAY 1
     Dates: start: 20100409, end: 20100503
  9. PLACEBO TO ERLOTINIB [Suspect]
     Dosage: CYCLE 1 DAY 22
     Dates: start: 20100312, end: 20100408
  10. PLACEBO TO ERLOTINIB [Suspect]
     Dosage: CYCLE 1 DAY 1
     Dates: start: 20100218, end: 20100311
  11. CIBRADEX [Concomitant]
     Indication: HYPERTENSION
     Dosage: AS USED: 10+12.5 MG
  12. DIAMICRON [Concomitant]
     Indication: DIABETES MELLITUS

REACTIONS (8)
  - ABDOMINAL PAIN [None]
  - ASCITES [None]
  - BLOOD ALBUMIN DECREASED [None]
  - BLOOD ALKALINE PHOSPHATASE INCREASED [None]
  - BLOOD BILIRUBIN INCREASED [None]
  - CELLULITIS STREPTOCOCCAL [None]
  - FATIGUE [None]
  - OEDEMA PERIPHERAL [None]
